FAERS Safety Report 7660918-3 (Version None)
Quarter: 2011Q3

REPORT INFORMATION
  Report Type: 
  Country: None (occurrence: None)
  Receive Date: 20110805
  Receipt Date: 20101008
  Transmission Date: 20111222
  Serious: No
  Sender: FDA-Public Use
  Company Number: US-ABBOTT-10P-163-0676888-00

PATIENT
  Sex: Female

DRUGS (8)
  1. NIASPAN [Suspect]
     Indication: HIGH DENSITY LIPOPROTEIN DECREASED
     Dosage: AT BEDTIME
     Dates: start: 20100901, end: 20101005
  2. NIASPAN [Suspect]
     Dosage: AT BEDTIME
     Dates: start: 20101005
  3. UNKNOWN MEDICATION [Concomitant]
     Indication: DIABETES MELLITUS
  4. NIASPAN [Suspect]
     Indication: BLOOD TRIGLYCERIDES INCREASED
     Dates: start: 20090101
  5. SIMVASTATIN [Concomitant]
     Indication: PRODUCT USED FOR UNKNOWN INDICATION
  6. ASPIRIN [Concomitant]
     Indication: PRODUCT USED FOR UNKNOWN INDICATION
  7. UNKNOWN MEDICATION [Concomitant]
     Indication: NEOPLASM MALIGNANT
  8. UNKNOWN MEDICATION [Concomitant]
     Indication: HYPERTENSION

REACTIONS (8)
  - DYSPEPSIA [None]
  - BLOOD GLUCOSE INCREASED [None]
  - SENSORY DISTURBANCE [None]
  - NAUSEA [None]
  - BLOOD GLUCOSE NORMAL [None]
  - INSOMNIA [None]
  - DIZZINESS [None]
  - THERAPY REGIMEN CHANGED [None]
